FAERS Safety Report 5341623-5 (Version None)
Quarter: 2007Q2

REPORT INFORMATION
  Report Type: 
  Country: None (occurrence: None)
  Receive Date: 20070529
  Receipt Date: 20070529
  Transmission Date: 20071010
  Serious: Yes (Disabling)
  Sender: FDA-Public Use
  Company Number: None

PATIENT
  Age: 10 Year
  Sex: Male
  Weight: 24.721 kg

DRUGS (3)
  1. CEPHALEXIN [Suspect]
     Indication: PYODERMA
     Dosage: 500MG AM+PM PO
     Route: 048
     Dates: start: 20070416, end: 20070501
  2. ANIMAX [Concomitant]
  3. PREDNISOLONE [Concomitant]

REACTIONS (1)
  - DEAFNESS [None]
